FAERS Safety Report 6616640-5 (Version None)
Quarter: 2010Q1

REPORT INFORMATION
  Report Type: 
  Country: None (occurrence: None)
  Receive Date: 20100223
  Receipt Date: 20091116
  Transmission Date: 20100710
  Serious: No
  Sender: FDA-Public Use
  Company Number: 8052241

PATIENT
  Sex: Male

DRUGS (3)
  1. CIMZIA [Suspect]
     Dosage: 400 MG, DOSE FREQ.: ONCE MONTHLY SUBCUTANEOUS
     Route: 058
     Dates: start: 20090604, end: 20090916
  2. CIMZIA [Suspect]
     Dosage: 400 MG, EXTRA DOSE ON 01-OCT-2009 SUBCUTANEOUS
     Route: 058
     Dates: start: 20091001, end: 20091001
  3. CIMZIA [Suspect]
     Dosage: 400 MG, MONTHLY DOSE FREQ.: ONCE MONTHLY SUBCUTANEOUS
     Route: 058
     Dates: start: 20091112

REACTIONS (3)
  - ANORECTAL DISCOMFORT [None]
  - PROCTALGIA [None]
  - RECTAL HAEMORRHAGE [None]
